FAERS Safety Report 5725995-5 (Version None)
Quarter: 2008Q2

REPORT INFORMATION
  Report Type: 
  Country: None (occurrence: None)
  Receive Date: 20080501
  Receipt Date: 20080501
  Transmission Date: 20081010
  Serious: No
  Sender: FDA-Public Use
  Company Number: None

PATIENT
  Age: 70 Year
  Sex: Female

DRUGS (6)
  1. LIPITOR [Suspect]
     Dates: start: 20001216, end: 20040810
  2. NORVASC [Concomitant]
  3. GLIPIZIDE [Concomitant]
  4. LISINOPRIL [Concomitant]
  5. ATENOLOL [Concomitant]
  6. ASPIRIN [Concomitant]

REACTIONS (3)
  - BRAIN NEOPLASM [None]
  - LIVER INJURY [None]
  - MUSCULAR WEAKNESS [None]
